FAERS Safety Report 17792299 (Version 1)
Quarter: 2020Q2

REPORT INFORMATION
  Report Type: Spontaneous
  Country: CN (occurrence: CN)
  Receive Date: 20200515
  Receipt Date: 20200515
  Transmission Date: 20200714
  Serious: Yes (Hospitalization)
  Sender: FDA-Public Use
  Company Number: CN-PFIZER INC-2020192442

PATIENT
  Age: 32 Year
  Sex: Male
  Weight: 70 kg

DRUGS (1)
  1. ZYVOX [Suspect]
     Active Substance: LINEZOLID
     Indication: SPONDYLITIS
     Dosage: 0.6 G, 2X/DAY
     Route: 041
     Dates: start: 20200428, end: 20200504

REACTIONS (9)
  - Body temperature increased [Recovering/Resolving]
  - Off label use [Unknown]
  - Product use in unapproved indication [Unknown]
  - Tachycardia [Recovering/Resolving]
  - Tic [Recovering/Resolving]
  - Seizure [Recovering/Resolving]
  - Tachypnoea [Recovering/Resolving]
  - Transient ischaemic attack [Recovering/Resolving]
  - Hyperhidrosis [Recovering/Resolving]

NARRATIVE: CASE EVENT DATE: 20200428
